FAERS Safety Report 13150185 (Version 2)
Quarter: 2017Q1

REPORT INFORMATION
  Report Type: Spontaneous
  Country: US (occurrence: US)
  Receive Date: 20170125
  Receipt Date: 20170127
  Transmission Date: 20170428
  Serious: No
  Sender: FDA-Public Use
  Company Number: US-BAYER-2017-014420

PATIENT
  Age: 47 Year
  Sex: Female
  Weight: 73 kg

DRUGS (1)
  1. CLARITIN [Suspect]
     Active Substance: LORATADINE
     Dosage: ONE TABLET AS NEEDED
     Route: 048
     Dates: start: 201701, end: 201701

REACTIONS (2)
  - Drug ineffective [Unknown]
  - Product blister packaging issue [None]

NARRATIVE: CASE EVENT DATE: 201701
